FAERS Safety Report 7603839-4 (Version None)
Quarter: 2011Q3

REPORT INFORMATION
  Report Type: 
  Country: None (occurrence: None)
  Receive Date: 20110712
  Receipt Date: 20110707
  Transmission Date: 20111222
  Serious: Yes (Life-Threatening)
  Sender: FDA-Public Use
  Company Number: DE-GLAXOSMITHKLINE-D0071897A

PATIENT
  Sex: Male
  Weight: 100 kg

DRUGS (5)
  1. ARIXTRA [Suspect]
     Indication: IMMOBILE
     Dosage: 2.5MG PER DAY
     Route: 065
     Dates: start: 20110627
  2. KALIMATE [Concomitant]
     Route: 065
  3. CALCIUM CARBONATE [Concomitant]
     Route: 065
  4. DILTAHEXAL [Concomitant]
     Route: 065
  5. PANTOPRAZOLE [Concomitant]
     Route: 065

REACTIONS (2)
  - PULMONARY EMBOLISM [None]
  - DYSPNOEA [None]
